FAERS Safety Report 9703697 (Version 3)
Quarter: 2013Q4

REPORT INFORMATION
  Report Type: Report from Study
  Country: GR (occurrence: GR)
  Receive Date: 20131122
  Receipt Date: 20131223
  Transmission Date: 20140711
  Serious: Yes (Other)
  Sender: FDA-Public Use
  Company Number: GR-JNJFOC-20131109876

PATIENT
  Age: 48 Year
  Sex: Male

DRUGS (2)
  1. REMICADE [Suspect]
     Indication: PSORIASIS
     Dosage: 600 MG
     Route: 042
     Dates: start: 2013, end: 2013
  2. PREDNISONE [Concomitant]
     Route: 065

REACTIONS (2)
  - T-cell lymphoma [Not Recovered/Not Resolved]
  - Drug ineffective [Unknown]
